FAERS Safety Report 10274457 (Version 2)
Quarter: 2015Q2

REPORT INFORMATION
  Report Type: Spontaneous
  Country: US (occurrence: US)
  Receive Date: 20140702
  Receipt Date: 20150429
  Transmission Date: 20150821
  Serious: No
  Sender: FDA-Public Use
  Company Number: US-PFIZER INC-2014180770

PATIENT
  Age: 59 Year
  Sex: Female

DRUGS (1)
  1. ACCUPRIL [Suspect]
     Active Substance: QUINAPRIL HYDROCHLORIDE
     Dosage: UNK

REACTIONS (1)
  - Drug hypersensitivity [Unknown]
